FAERS Safety Report 8247522-3 (Version None)
Quarter: 2012Q1

REPORT INFORMATION
  Report Type: 
  Country: None (occurrence: None)
  Receive Date: 20120330
  Receipt Date: 20120324
  Transmission Date: 20120608
  Serious: Yes (Other)
  Sender: FDA-Public Use
  Company Number: US-PFIZER INC-2012078330

PATIENT
  Age: 44 Year
  Sex: Male

DRUGS (1)
  1. VENLAFAXINE HCL [Suspect]
     Indication: MAJOR DEPRESSION
     Dosage: 75 MG, DAILY

REACTIONS (3)
  - ABNORMAL DREAMS [None]
  - AMMONIA INCREASED [None]
  - HALLUCINATION, VISUAL [None]
